FAERS Safety Report 13442474 (Version 1)
Quarter: 2017Q2

REPORT INFORMATION
  Report Type: Spontaneous
  Country: US (occurrence: US)
  Receive Date: 20170413
  Receipt Date: 20170413
  Transmission Date: 20170830
  Serious: No
  Sender: FDA-Public Use
  Company Number: None

PATIENT
  Age: 31 Year
  Sex: Male
  Weight: 68.85 kg

DRUGS (1)
  1. BUPROPION HCL XL 150MG TABLET [Suspect]
     Active Substance: BUPROPION HYDROCHLORIDE
     Indication: DEPRESSION
     Dosage: ?          QUANTITY:3 TABLET(S);?
     Route: 048
     Dates: start: 20170401, end: 20170408

REACTIONS (6)
  - Anxiety [None]
  - Nausea [None]
  - Headache [None]
  - Vertigo [None]
  - Tremor [None]
  - Hyperhidrosis [None]

NARRATIVE: CASE EVENT DATE: 20170407
